FAERS Safety Report 4828479-1 (Version None)
Quarter: 2005Q4

REPORT INFORMATION
  Report Type: 
  Country: None (occurrence: None)
  Receive Date: 20051110
  Receipt Date: 20051031
  Transmission Date: 20060501
  Serious: Yes (Death, Hospitalization)
  Sender: FDA-Public Use
  Company Number: L05-UKI-04165-01

PATIENT
  Age: 21 Year
  Sex: Female

DRUGS (1)
  1. CARBAMAZEPINE [Suspect]
     Indication: MUSCLE SPASMS
     Dosage: 200 MG QD

REACTIONS (21)
  - ABDOMINAL DISCOMFORT [None]
  - CHILLS [None]
  - CONFUSIONAL STATE [None]
  - DIARRHOEA HAEMORRHAGIC [None]
  - DRUG RASH WITH EOSINOPHILIA AND SYSTEMIC SYMPTOMS [None]
  - DYSPNOEA [None]
  - ENCEPHALOPATHY [None]
  - EOSINOPHIL COUNT INCREASED [None]
  - HEPATIC FAILURE [None]
  - HYPOGLYCAEMIA [None]
  - INTERNATIONAL NORMALISED RATIO INCREASED [None]
  - LACTIC ACIDOSIS [None]
  - LYMPHOCYTE COUNT INCREASED [None]
  - MONOCYTE COUNT INCREASED [None]
  - NEUTROPHIL COUNT INCREASED [None]
  - PLEURAL EFFUSION [None]
  - PYREXIA [None]
  - RASH [None]
  - SEPSIS [None]
  - SKIN EXFOLIATION [None]
  - WHITE BLOOD CELL COUNT INCREASED [None]
